FAERS Safety Report 8426967-2 (Version None)
Quarter: 2012Q2

REPORT INFORMATION
  Report Type: 
  Country: None (occurrence: None)
  Receive Date: 20120531
  Receipt Date: 20120522
  Transmission Date: 20120825
  Serious: Yes (Hospitalization, Other)
  Sender: FDA-Public Use
  Company Number: 2012SP009805

PATIENT
  Sex: Male

DRUGS (3)
  1. RIBAVIRIN [Suspect]
     Indication: HEPATITIS C
     Dates: start: 20111206, end: 20120214
  2. TELAPREVIR [Suspect]
     Indication: HEPATITIS C
     Dates: start: 20111206, end: 20120214
  3. PEG-INTRON [Suspect]
     Indication: HEPATITIS C
     Dates: start: 20111206, end: 20120214

REACTIONS (11)
  - PAIN [None]
  - BALANCE DISORDER [None]
  - DEHYDRATION [None]
  - ASTHENIA [None]
  - HEADACHE [None]
  - IRRITABILITY [None]
  - WEIGHT INCREASED [None]
  - FATIGUE [None]
  - THROMBOSIS [None]
  - MIDDLE INSOMNIA [None]
  - PANCREATITIS [None]
